FAERS Safety Report 6372136-X (Version None)
Quarter: 2009Q3

REPORT INFORMATION
  Report Type: 
  Country: None (occurrence: None)
  Receive Date: 20090917
  Receipt Date: 20090904
  Transmission Date: 20100115
  Serious: Yes (Life-Threatening, Hospitalization, Disabling, Other)
  Sender: FDA-Public Use
  Company Number: ADR16322009

PATIENT
  Age: 57 Year
  Sex: Female

DRUGS (8)
  1. CITALOPRAM HYDROBROMIDE [Suspect]
     Indication: DEPRESSION
     Dosage: 20 MG
     Route: 048
     Dates: start: 20090202, end: 20090205
  2. METRONIDAZOLE [Concomitant]
  3. BENDROFLUMETHIAZIDE [Concomitant]
  4. GARLIC OIL ESSENTIAL [Concomitant]
  5. MAGNESIUM [Concomitant]
  6. MENOPACE [Concomitant]
  7. PARACETAMOL [Concomitant]
  8. RAMIPRIL [Concomitant]

REACTIONS (10)
  - BLOOD SODIUM DECREASED [None]
  - CONVULSION [None]
  - DRUG INTERACTION [None]
  - FEELING HOT [None]
  - GAIT DISTURBANCE [None]
  - MEMORY IMPAIRMENT [None]
  - NEUROLOGICAL SYMPTOM [None]
  - OSMOTIC DEMYELINATION SYNDROME [None]
  - THIRST [None]
  - VOMITING [None]
